FAERS Safety Report 6865831-7 (Version None)
Quarter: 2010Q3

REPORT INFORMATION
  Report Type: 
  Country: None (occurrence: None)
  Receive Date: 20100720
  Receipt Date: 20100707
  Transmission Date: 20110219
  Serious: Yes (Death, Other)
  Sender: FDA-Public Use
  Company Number: 7008445

PATIENT
  Age: 49 Year
  Sex: Female

DRUGS (1)
  1. REBIF [Suspect]
     Indication: MULTIPLE SCLEROSIS
     Dosage: 44 MCG, 1 IN 1 WK
     Dates: start: 20080201

REACTIONS (3)
  - FAECAL INCONTINENCE [None]
  - RESPIRATORY ARREST [None]
  - URINARY INCONTINENCE [None]
